FAERS Safety Report 4905337-5 (Version None)
Quarter: 2006Q1

REPORT INFORMATION
  Report Type: 
  Country: None (occurrence: None)
  Receive Date: 20060207
  Receipt Date: 20060207
  Transmission Date: 20060701
  Serious: Yes (Death)
  Sender: FDA-Public Use
  Company Number: None

PATIENT
  Age: 84 Year
  Sex: Male
  Weight: 86.1834 kg

DRUGS (1)
  1. COUMADIN [Suspect]

REACTIONS (1)
  - CEREBROVASCULAR ACCIDENT [None]
